FAERS Safety Report 11011872 (Version 2)
Quarter: 2015Q2

REPORT INFORMATION
  Report Type: Spontaneous
  Country: US (occurrence: US)
  Receive Date: 20150410
  Receipt Date: 20150525
  Transmission Date: 20150821
  Serious: Yes (Other)
  Sender: FDA-Public Use
  Company Number: US-JNJFOC-20140201971

PATIENT
  Age: 20 Year
  Sex: Male

DRUGS (3)
  1. INFLIXIMAB [Suspect]
     Active Substance: INFLIXIMAB
     Indication: COLITIS ULCERATIVE
     Route: 042
  2. ADALIMUMAB [Suspect]
     Active Substance: ADALIMUMAB
     Indication: COLITIS ULCERATIVE
     Route: 065
  3. MERCAPTOPURINE. [Suspect]
     Active Substance: MERCAPTOPURINE
     Indication: COLITIS ULCERATIVE
     Route: 065

REACTIONS (8)
  - Irritable bowel syndrome [Unknown]
  - Pain [Unknown]
  - Anaemia [Unknown]
  - Emotional distress [Unknown]
  - Injury [Unknown]
  - Fear [Unknown]
  - Hepatosplenic T-cell lymphoma [Unknown]
  - Anxiety [Unknown]
